FAERS Safety Report 24445776 (Version 1)
Quarter: 2024Q4

REPORT INFORMATION
  Report Type: Spontaneous
  Country: US (occurrence: US)
  Receive Date: 20241016
  Receipt Date: 20241016
  Transmission Date: 20250114
  Serious: Yes (Hospitalization, Other)
  Sender: NOVARTIS
  Company Number: US-002147023-NVSC2024US201060

PATIENT
  Age: 69 Year
  Sex: Female

DRUGS (1)
  1. IPTACOPAN [Suspect]
     Active Substance: IPTACOPAN
     Indication: Paroxysmal nocturnal haemoglobinuria
     Dosage: 200 MG, BID
     Route: 048
     Dates: start: 20221201

REACTIONS (3)
  - Pyrexia [Unknown]
  - Pain [Unknown]
  - Pneumonia [Unknown]
